FAERS Safety Report 8565463 (Version 14)
Quarter: 2015Q1

REPORT INFORMATION
  Report Type: Report from Study
  Country: AU (occurrence: AU)
  Receive Date: 20120516
  Receipt Date: 20150227
  Transmission Date: 20150721
  Serious: Yes (Hospitalization)
  Sender: FDA-Public Use
  Company Number: AU-ROCHE-1068050

PATIENT
  Age: 73 Year
  Sex: Male
  Weight: 86.7 kg

DRUGS (17)
  1. VEMURAFENIB [Suspect]
     Active Substance: VEMURAFENIB
     Dosage: DATE OF LAST DOSE PRIOR TO SAE : 15/FEB/2012
     Route: 048
     Dates: start: 20120105
  2. STEMETIL [Concomitant]
     Active Substance: PROCHLORPERAZINE MALEATE
     Route: 065
     Dates: start: 20111208
  3. FLUCONAZOLE. [Concomitant]
     Active Substance: FLUCONAZOLE
     Route: 065
     Dates: start: 20120207
  4. ISOPTIN SR [Concomitant]
     Active Substance: VERAPAMIL HYDROCHLORIDE
     Route: 065
     Dates: start: 197101, end: 20120430
  5. OMEPRAZOLE. [Concomitant]
     Active Substance: OMEPRAZOLE
     Route: 065
     Dates: start: 20111123
  6. NYSTATIN LOZENGE [Concomitant]
     Route: 065
     Dates: start: 20111208
  7. OXYCONTIN [Concomitant]
     Active Substance: OXYCODONE HYDROCHLORIDE
     Route: 065
     Dates: start: 20111204
  8. VEMURAFENIB [Suspect]
     Active Substance: VEMURAFENIB
     Dosage: DATE OF LAST DOSE PRIOR TO SAE : 29/APR/2012.
     Route: 048
     Dates: start: 20120216, end: 20120508
  9. CRESTOR [Concomitant]
     Active Substance: ROSUVASTATIN CALCIUM
     Route: 065
     Dates: start: 2000
  10. PRESSIN (AUSTRALIA) [Concomitant]
     Route: 065
     Dates: start: 197101, end: 20120430
  11. LACTULOSE. [Concomitant]
     Active Substance: LACTULOSE
     Route: 065
     Dates: start: 20111110
  12. VEMURAFENIB [Suspect]
     Active Substance: VEMURAFENIB
     Indication: METASTATIC MALIGNANT MELANOMA
     Dosage: DATE OF LAST DOSE PRIOR TO SAE : 04/JAN/2012.
     Route: 048
     Dates: start: 20111110
  13. MICARDIS [Concomitant]
     Active Substance: TELMISARTAN
     Route: 065
     Dates: start: 197101, end: 20120430
  14. COLOXYL + SENNA [Concomitant]
     Route: 065
     Dates: start: 20111110
  15. METOCLOPRAMIDE. [Concomitant]
     Active Substance: METOCLOPRAMIDE
     Route: 065
     Dates: start: 20111117
  16. PANDOL [Concomitant]
     Active Substance: HALOPERIDOL
     Route: 065
     Dates: start: 20111123
  17. ASPIRIN. [Concomitant]
     Active Substance: ASPIRIN
     Route: 065
     Dates: start: 20120105

REACTIONS (1)
  - Hypotension [Recovered/Resolved]

NARRATIVE: CASE EVENT DATE: 20120430
